FAERS Safety Report 4413535-2 (Version None)
Quarter: 2004Q3

REPORT INFORMATION
  Report Type: 
  Country: None (occurrence: None)
  Receive Date: 20040728
  Receipt Date: 20040715
  Transmission Date: 20050211
  Serious: Yes (Other)
  Sender: FDA-Public Use
  Company Number: 232573K04USA

PATIENT
  Age: 33 Year
  Sex: Female

DRUGS (5)
  1. REBIF [Suspect]
     Indication: MULTIPLE SCLEROSIS
     Dosage: 44 MCG, SUBCUTANEOUS
     Route: 058
     Dates: start: 20021127
  2. BACLOFEN [Concomitant]
  3. GABAPENTIN [Concomitant]
  4. MECLIZINE HCL [Concomitant]
  5. CLONAZEPAM [Concomitant]

REACTIONS (12)
  - ATAXIA [None]
  - CONVULSION [None]
  - DROOLING [None]
  - FACIAL PALSY [None]
  - FUNGAL INFECTION [None]
  - HYPOAESTHESIA [None]
  - MIGRAINE [None]
  - MOVEMENT DISORDER [None]
  - MUSCLE SPASMS [None]
  - PARANOIA [None]
  - SOMNOLENCE [None]
  - VOMITING [None]
